FAERS Safety Report 25670513 (Version 3)
Quarter: 2025Q3

REPORT INFORMATION
  Report Type: Report from Study
  Country: US (occurrence: US)
  Receive Date: 20250812
  Receipt Date: 20250929
  Transmission Date: 20251021
  Serious: Yes (Death)
  Sender: FERRING
  Company Number: US-FERRINGPH-2025FE04211

PATIENT

DRUGS (1)
  1. NADOFARAGENE FIRADENOVEC [Suspect]
     Active Substance: NADOFARAGENE FIRADENOVEC
     Indication: Bladder cancer
     Route: 065
     Dates: start: 202505

REACTIONS (1)
  - Acute respiratory failure [Fatal]
